FAERS Safety Report 8247153-5 (Version None)
Quarter: 2012Q1

REPORT INFORMATION
  Report Type: 
  Country: None (occurrence: None)
  Receive Date: 20120330
  Receipt Date: 20120321
  Transmission Date: 20120608
  Serious: Yes (Hospitalization, Other)
  Sender: FDA-Public Use
  Company Number: BR-JNJFOC-20120312977

PATIENT
  Age: 51 Year
  Sex: Male
  Weight: 78 kg

DRUGS (2)
  1. CLONAZEPAM [Concomitant]
     Indication: SCHIZOPHRENIA
     Route: 048
     Dates: start: 20090101
  2. INVEGA SUSTENNA [Suspect]
     Indication: SCHIZOPHRENIA
     Route: 065
     Dates: start: 20120309

REACTIONS (2)
  - DIARRHOEA [None]
  - PNEUMONIA [None]
